FAERS Safety Report 7548062-7 (Version None)
Quarter: 2011Q2

REPORT INFORMATION
  Report Type: 
  Country: None (occurrence: None)
  Receive Date: 20110615
  Receipt Date: 20110601
  Transmission Date: 20111010
  Serious: Yes (Other)
  Sender: FDA-Public Use
  Company Number: US-ELI_LILLY_AND_COMPANY-US201011006027

PATIENT
  Sex: Male

DRUGS (3)
  1. FORTEO [Suspect]
     Dosage: 20 UG, QD
  2. FORTEO [Suspect]
     Indication: OSTEOPOROSIS
     Dosage: 20 UG, DAILY (1/D)
     Route: 065
     Dates: start: 20101101
  3. FORTEO [Suspect]
     Dosage: 20 UG, DAILY (1/D)
     Route: 065

REACTIONS (15)
  - BREATHING-RELATED SLEEP DISORDER [None]
  - HAEMATURIA [None]
  - PAIN [None]
  - DIZZINESS [None]
  - URINE ANALYSIS ABNORMAL [None]
  - NEPHROLITHIASIS [None]
  - FATIGUE [None]
  - PROSTATOMEGALY [None]
  - HYPOKINESIA [None]
  - MUSCULAR WEAKNESS [None]
  - RHEUMATOID ARTHRITIS [None]
  - URINARY TRACT INFECTION [None]
  - PSORIATIC ARTHROPATHY [None]
  - MYALGIA [None]
  - HYPERSOMNIA [None]
